FAERS Safety Report 16933551 (Version 1)
Quarter: 2019Q4

REPORT INFORMATION
  Report Type: Spontaneous
  Country: GB (occurrence: GB)
  Receive Date: 20191018
  Receipt Date: 20191018
  Transmission Date: 20200122
  Serious: Yes (Disabling)
  Sender: FDA-Public Use
  Company Number: GB-TEVA-2019-GB-1122510

PATIENT
  Age: 94 Year
  Sex: Female

DRUGS (1)
  1. TRIMETHOPRIM. [Suspect]
     Active Substance: TRIMETHOPRIM
     Dosage: 400 MG, 1 DAY
     Route: 065

REACTIONS (3)
  - Accidental overdose [Unknown]
  - Product dispensing error [Unknown]
  - Movement disorder [Unknown]
